FAERS Safety Report 15801201 (Version 8)
Quarter: 2020Q2

REPORT INFORMATION
  Report Type: Report from Study
  Country: US (occurrence: US)
  Receive Date: 20190109
  Receipt Date: 20200626
  Transmission Date: 20200713
  Serious: Yes (Hospitalization, Other)
  Sender: FDA-Public Use
  Company Number: US-EMD SERONO-E2B_90047743

PATIENT
  Age: 61 Year
  Sex: Female

DRUGS (7)
  1. REBIF [Suspect]
     Active Substance: INTERFERON BETA-1A
     Indication: MULTIPLE SCLEROSIS
     Route: 058
     Dates: start: 20030901, end: 20150613
  2. REBIF [Suspect]
     Active Substance: INTERFERON BETA-1A
     Route: 058
     Dates: start: 20171106
  3. REBIF [Suspect]
     Active Substance: INTERFERON BETA-1A
     Route: 058
     Dates: start: 20181228
  4. REBIF [Suspect]
     Active Substance: INTERFERON BETA-1A
     Route: 058
  5. REBIF [Suspect]
     Active Substance: INTERFERON BETA-1A
     Route: 058
     Dates: end: 20181121
  6. GABAPENTIN. [Suspect]
     Active Substance: GABAPENTIN
     Indication: PRODUCT USED FOR UNKNOWN INDICATION
  7. REBIF [Suspect]
     Active Substance: INTERFERON BETA-1A
     Route: 058

REACTIONS (35)
  - Limb discomfort [Unknown]
  - Hypertension [Recovered/Resolved]
  - Incision site swelling [Not Recovered/Not Resolved]
  - Asthenia [Unknown]
  - Muscular weakness [Unknown]
  - Hip fracture [Unknown]
  - Dysphagia [Not Recovered/Not Resolved]
  - Dizziness postural [Not Recovered/Not Resolved]
  - Ill-defined disorder [Not Recovered/Not Resolved]
  - Fall [Unknown]
  - Adverse drug reaction [Unknown]
  - Disorientation [Unknown]
  - Pneumonia aspiration [Unknown]
  - Vertigo [Unknown]
  - Injection site bruising [Not Recovered/Not Resolved]
  - Choking [Unknown]
  - Concussion [Not Recovered/Not Resolved]
  - Magnetic resonance imaging abnormal [Unknown]
  - Memory impairment [Not Recovered/Not Resolved]
  - Head injury [Unknown]
  - Balance disorder [Unknown]
  - Incision site erythema [Unknown]
  - Headache [Not Recovered/Not Resolved]
  - Contusion [Unknown]
  - Hypotension [Recovering/Resolving]
  - Cerebral disorder [Not Recovered/Not Resolved]
  - Mobility decreased [Recovering/Resolving]
  - Nausea [Unknown]
  - Gastroenteritis viral [Recovering/Resolving]
  - Aspiration [Unknown]
  - Tongue disorder [Unknown]
  - Dizziness [Recovering/Resolving]
  - Gait inability [Not Recovered/Not Resolved]
  - Gastrooesophageal reflux disease [Unknown]
  - Drug ineffective [Unknown]

NARRATIVE: CASE EVENT DATE: 2018
